FAERS Safety Report 17073589 (Version 1)
Quarter: 2019Q4

REPORT INFORMATION
  Report Type: Report from Study
  Country: DZ (occurrence: DZ)
  Receive Date: 20191126
  Receipt Date: 20191126
  Transmission Date: 20200122
  Serious: Yes (Death)
  Sender: FDA-Public Use
  Company Number: DZ-ACTELION-A-NJ2018-182498

PATIENT
  Age: 48 Year
  Sex: Male

DRUGS (1)
  1. VENTAVIS [Suspect]
     Active Substance: ILOPROST
     Indication: PULMONARY ARTERIAL HYPERTENSION
     Dosage: 2 ML, 5X/DAY
     Route: 055
     Dates: start: 201702, end: 20181115

REACTIONS (1)
  - Brain abscess [Fatal]
